FAERS Safety Report 16646690 (Version 1)
Quarter: 2019Q3

REPORT INFORMATION
  Report Type: Spontaneous
  Country: JP (occurrence: JP)
  Receive Date: 20190730
  Receipt Date: 20190730
  Transmission Date: 20191004
  Serious: Yes (Death, Other)
  Sender: FDA-Public Use
  Company Number: JP-SAKK-2019SA200559AA

PATIENT
  Age: 80 Year
  Sex: Male
  Weight: 48.7 kg

DRUGS (2)
  1. TS-1 [Concomitant]
     Active Substance: GIMERACIL\OTERACIL\TEGAFUR
     Indication: GASTRIC CANCER
     Route: 065
  2. TAXOTERE [Suspect]
     Active Substance: DOCETAXEL
     Indication: GASTRIC CANCER
     Route: 041

REACTIONS (10)
  - Pancytopenia [Unknown]
  - Blood pressure decreased [Unknown]
  - Septic shock [Unknown]
  - Disseminated intravascular coagulation [Fatal]
  - Nutritional condition abnormal [Unknown]
  - Pneumonia [Unknown]
  - Multiple organ dysfunction syndrome [Fatal]
  - Blood phosphorus decreased [Recovered/Resolved]
  - Acute respiratory distress syndrome [Unknown]
  - Atrial fibrillation [Recovered/Resolved]
